FAERS Safety Report 16149791 (Version 2)
Quarter: 2019Q2

REPORT INFORMATION
  Report Type: Spontaneous
  Country: CA (occurrence: CA)
  Receive Date: 20190402
  Receipt Date: 20190509
  Transmission Date: 20190711
  Serious: Yes (Other)
  Sender: FDA-Public Use
  Company Number: CA-SHIRE-CA201910431

PATIENT

DRUGS (2)
  1. ARTIFICIAL TEAR [Concomitant]
     Active Substance: LANOLIN\MINERAL OIL\PETROLATUM
     Indication: PRODUCT USED FOR UNKNOWN INDICATION
  2. XIIDRA [Suspect]
     Active Substance: LIFITEGRAST
     Indication: PRODUCT USED FOR UNKNOWN INDICATION
     Dosage: 1 GTT DROPS, 2X/DAY:BID
     Route: 047

REACTIONS (1)
  - Ulcerative keratitis [Unknown]

NARRATIVE: CASE EVENT DATE: 20190317
